FAERS Safety Report 4663373-0 (Version None)
Quarter: 2005Q2

REPORT INFORMATION
  Report Type: 
  Country: None (occurrence: None)
  Receive Date: 20050517
  Receipt Date: 20050407
  Transmission Date: 20051028
  Serious: Yes (Hospitalization)
  Sender: FDA-Public Use
  Company Number: ESWYE568308APR05

PATIENT
  Age: 72 Year
  Sex: Female

DRUGS (9)
  1. ENBREL [Suspect]
     Indication: PSORIATIC ARTHROPATHY
     Route: 058
     Dates: start: 20030801, end: 20040312
  2. ENBREL [Suspect]
     Route: 058
     Dates: start: 20040601, end: 20040901
  3. ENBREL [Suspect]
     Route: 058
     Dates: start: 20041101, end: 20050201
  4. PREDNISONE [Concomitant]
     Dates: start: 20020401
  5. DICLOFENAC [Concomitant]
     Dates: start: 20020601
  6. ALENDRONATE SODIUM [Concomitant]
     Dates: start: 20020601
  7. CALCIUM GLUCONATE [Concomitant]
     Dates: start: 20020601
  8. IRON [Concomitant]
     Dates: start: 20050201
  9. MELOXICAM [Concomitant]
     Dates: start: 20040701

REACTIONS (4)
  - CELLULITIS [None]
  - PULMONARY FIBROSIS [None]
  - RESPIRATORY FAILURE [None]
  - RHEUMATOID FACTOR INCREASED [None]
